FAERS Safety Report 18360280 (Version 2)
Quarter: 2020Q4

REPORT INFORMATION
  Report Type: Spontaneous
  Country: CH (occurrence: ES)
  Receive Date: 20201008
  Receipt Date: 20201026
  Transmission Date: 20210114
  Serious: Yes (Death, Other)
  Sender: FDA-Public Use
  Company Number: ES-ASTELLAS-2020US026799

PATIENT
  Age: 6 Year
  Sex: Female
  Weight: 20 kg

DRUGS (3)
  1. ISAVUCONAZOLE [Suspect]
     Active Substance: ISAVUCONAZOLE
     Dosage: 100 MG, EVERY 12 HOURS  (FOR 2 DAYS)
     Route: 042
     Dates: start: 20200918
  2. AMPHOTERICIN B, LIPOSOME [Concomitant]
     Active Substance: AMPHOTERICIN B
     Indication: MUCORMYCOSIS
     Dosage: UNK UNK, UNKNOWN FREQ.
     Route: 065
  3. ISAVUCONAZOLE [Suspect]
     Active Substance: ISAVUCONAZOLE
     Indication: DISSEMINATED MUCORMYCOSIS
     Route: 042
     Dates: start: 20200709

REACTIONS (6)
  - Disseminated mucormycosis [Fatal]
  - Drug level below therapeutic [Unknown]
  - Pneumonia cytomegaloviral [Fatal]
  - Genitourinary tract infection [Fatal]
  - Gastrointestinal mucormycosis [Fatal]
  - Product administered to patient of inappropriate age [Unknown]

NARRATIVE: CASE EVENT DATE: 20200709
